FAERS Safety Report 13500915 (Version 2)
Quarter: 2017Q4

REPORT INFORMATION
  Report Type: Spontaneous
  Country: US (occurrence: US)
  Receive Date: 20170501
  Receipt Date: 20171027
  Transmission Date: 20180320
  Serious: No
  Sender: FDA-Public Use
  Company Number: US-ROCHE-1849448

PATIENT
  Age: 84 Year
  Sex: Female
  Weight: 68.1 kg

DRUGS (1)
  1. ESBRIET [Suspect]
     Active Substance: PIRFENIDONE
     Indication: IDIOPATHIC PULMONARY FIBROSIS
     Dosage: 1 PILL 3X/DAY 1ST WEEK ,2 PILLS 3 TIMES DAY FOR SECOND WEEK AND 3 PILLS 3 TIMES A DAY FOR THIRD WEEK
     Route: 048
     Dates: start: 20161029, end: 20161029

REACTIONS (3)
  - Abdominal pain upper [Unknown]
  - Diarrhoea [Unknown]
  - Nausea [Unknown]

NARRATIVE: CASE EVENT DATE: 20161029
